FAERS Safety Report 24045082 (Version 1)
Quarter: 2024Q3

REPORT INFORMATION
  Report Type: Spontaneous
  Country: CN (occurrence: CN)
  Receive Date: 20240703
  Receipt Date: 20240703
  Transmission Date: 20241017
  Serious: Yes (Other)
  Sender: ABBVIE
  Company Number: CN-PFIZER INC-PV202400085689

PATIENT
  Age: 70 Year
  Sex: Female

DRUGS (1)
  1. AVIBACTAM SODIUM [Suspect]
     Active Substance: AVIBACTAM SODIUM
     Indication: Pneumonia
     Dosage: 1.25 G, Q12H
     Route: 041
     Dates: start: 20240619, end: 20240626

REACTIONS (3)
  - Renal impairment [Not Recovered/Not Resolved]
  - Blood creatinine increased [Not Recovered/Not Resolved]
  - Off label use [Unknown]

NARRATIVE: CASE EVENT DATE: 20240619
